FAERS Safety Report 24568308 (Version 2)
Quarter: 2024Q4

REPORT INFORMATION
  Report Type: Spontaneous
  Country: EC (occurrence: EC)
  Receive Date: 20241031
  Receipt Date: 20241114
  Transmission Date: 20250115
  Serious: Yes (Death)
  Sender: BIOGEN
  Company Number: EC-BIOGEN-2024BI01288284

PATIENT
  Age: 1 Year
  Sex: Female

DRUGS (2)
  1. SPINRAZA [Suspect]
     Active Substance: NUSINERSEN
     Indication: Spinal muscular atrophy
     Dosage: 2.4MG/ML, 4TH CHARGE DOSE, INTRATHECAL BOLUS INJECTION
     Route: 050
     Dates: end: 20241023
  2. SPINRAZA [Suspect]
     Active Substance: NUSINERSEN
     Dosage: 12/5ML, INTRATHECAL BOLUS INJECTION
     Route: 050
     Dates: start: 20240530, end: 20241023

REACTIONS (2)
  - Pneumonia [Fatal]
  - Septic shock [Fatal]

NARRATIVE: CASE EVENT DATE: 20241018
